FAERS Safety Report 24281299 (Version 2)
Quarter: 2024Q4

REPORT INFORMATION
  Report Type: Spontaneous
  Country: US (occurrence: US)
  Receive Date: 20240904
  Receipt Date: 20241213
  Transmission Date: 20250115
  Serious: No
  Sender: BAYER HEALTHCARE PHARMACEUTICALS INC.
  Company Number: US-BAYER-2024A126344

PATIENT
  Age: 32 Year
  Sex: Male

DRUGS (4)
  1. KOVALTRY [Suspect]
     Active Substance: ANTIHEMOPHILIC FACTOR, HUMAN RECOMBINANT
     Dosage: INFUSE 2000 UNITS (+/-10%) EVERY 12 TO 24 ,4 DF
  2. KOVALTRY [Suspect]
     Active Substance: ANTIHEMOPHILIC FACTOR, HUMAN RECOMBINANT
     Dosage: KOVALTRY 809 UNITS/1097 UNITS:2000 UNITS, INFUSION
  3. KOVALTRY [Suspect]
     Active Substance: ANTIHEMOPHILIC FACTOR, HUMAN RECOMBINANT
     Dosage: INFUSE 2000 UNITS (+/-10%) EVERY 12 TO 24 ,1 DF
     Dates: start: 20240914
  4. KOVALTRY [Suspect]
     Active Substance: ANTIHEMOPHILIC FACTOR, HUMAN RECOMBINANT
     Dosage: INFUSE 2000 UNITS (+/-10%) EVERY 12 TO 24 ,

REACTIONS (6)
  - Dental care [None]
  - Joint injury [None]
  - Arthralgia [None]
  - Dental cleaning [None]
  - Artificial crown procedure [None]
  - Tooth fracture [None]

NARRATIVE: CASE EVENT DATE: 20240827
